FAERS Safety Report 7571097-5 (Version None)
Quarter: 2011Q2

REPORT INFORMATION
  Report Type: 
  Country: None (occurrence: None)
  Receive Date: 20110624
  Receipt Date: 20110621
  Transmission Date: 20111010
  Serious: Yes (Other)
  Sender: FDA-Public Use
  Company Number: US-PFIZER INC-2011137393

PATIENT
  Sex: Male

DRUGS (2)
  1. VIAGRA [Suspect]
     Dosage: UNK
  2. VIAGRA [Suspect]
     Dosage: 25 MG, UNK

REACTIONS (4)
  - PENILE HAEMORRHAGE [None]
  - MEMORY IMPAIRMENT [None]
  - PENIS DISORDER [None]
  - SKIN DISCOLOURATION [None]
